FAERS Safety Report 4637950-7 (Version None)
Quarter: 2005Q2

REPORT INFORMATION
  Report Type: 
  Country: None (occurrence: None)
  Receive Date: 20050418
  Receipt Date: 20050407
  Transmission Date: 20051028
  Serious: Yes (Hospitalization)
  Sender: FDA-Public Use
  Company Number: CR-ROCHE-401409

PATIENT
  Age: 9 Year
  Sex: Female

DRUGS (2)
  1. ZENAPAX [Suspect]
     Route: 065
  2. CELLCEPT [Suspect]
     Route: 065

REACTIONS (2)
  - GASTROINTESTINAL DISORDER [None]
  - HERPES ZOSTER [None]
